FAERS Safety Report 9671644 (Version 1)
Quarter: 2013Q4

REPORT INFORMATION
  Report Type: Spontaneous
  Country: US (occurrence: US)
  Receive Date: 20131106
  Receipt Date: 20131106
  Transmission Date: 20140711
  Serious: No
  Sender: FDA-Public Use
  Company Number: US-PFIZER INC-2013312998

PATIENT
  Sex: 0

DRUGS (2)
  1. EXEMESTANE [Suspect]
     Dosage: UNK
     Dates: start: 201212
  2. METFORMIN HCL [Suspect]
     Dosage: UNK

REACTIONS (2)
  - Rash pruritic [Unknown]
  - Erythema [Unknown]
